FAERS Safety Report 5162847-6 (Version None)
Quarter: 2006Q4

REPORT INFORMATION
  Report Type: 
  Country: None (occurrence: None)
  Receive Date: 20061201
  Receipt Date: 20011213
  Transmission Date: 20070319
  Serious: Yes (Disabling)
  Sender: FDA-Public Use
  Company Number: FR-GLAXOSMITHKLINE-B0129837A

PATIENT
  Sex: Male
  Weight: 1.3 kg

DRUGS (2)
  1. RETROVIR [Suspect]
     Indication: ANTIVIRAL PROPHYLAXIS
     Route: 048
  2. RETROVIR [Suspect]
     Indication: HIV INFECTION
     Route: 048

REACTIONS (7)
  - DEVELOPMENTAL DELAY [None]
  - FOETAL DISTRESS SYNDROME [None]
  - HYPERLACTACIDAEMIA [None]
  - MITOCHONDRIAL CYTOPATHY [None]
  - MOBILITY DECREASED [None]
  - PREMATURE BABY [None]
  - QUADRIPARESIS [None]
